FAERS Safety Report 23429759 (Version 4)
Quarter: 2024Q1

REPORT INFORMATION
  Report Type: Report from Study
  Country: US (occurrence: US)
  Receive Date: 20240122
  Receipt Date: 20240311
  Transmission Date: 20240410
  Serious: Yes (Hospitalization)
  Sender: FDA-Public Use
  Company Number: US-JNJFOC-20240136201

PATIENT
  Age: 59 Year
  Sex: Female

DRUGS (23)
  1. SPRAVATO [Suspect]
     Active Substance: ESKETAMINE
     Indication: Depression
     Dosage: ^56 MG, 5 TOTAL DOSES^
     Dates: start: 20230202, end: 20230216
  2. SPRAVATO [Suspect]
     Active Substance: ESKETAMINE
     Indication: Major depression
     Dosage: ^84 MG, 55 TOTAL DOSES^
     Dates: start: 20230221, end: 20230926
  3. SPRAVATO [Suspect]
     Active Substance: ESKETAMINE
     Dosage: ^56 MG, 3 TOTAL DOSES^
     Dates: start: 20230928, end: 20231005
  4. SPRAVATO [Suspect]
     Active Substance: ESKETAMINE
     Dosage: ^84 MG, 20 TOTAL DOSES^
     Dates: start: 20231010, end: 20240109
  5. SPRAVATO [Suspect]
     Active Substance: ESKETAMINE
     Dosage: ^84 MG, 1 TOTAL DOSE^
     Dates: start: 20240111, end: 20240111
  6. ADDERALL [Concomitant]
     Active Substance: AMPHETAMINE ASPARTATE\AMPHETAMINE SULFATE\DEXTROAMPHETAMINE SACCHARATE\DEXTROAMPHETAMINE SULFATE
     Indication: Attention deficit hyperactivity disorder
     Dosage: START DATE: {2024
     Route: 048
  7. MIRAPEX [Concomitant]
     Active Substance: PRAMIPEXOLE DIHYDROCHLORIDE
     Indication: Adverse drug reaction
     Dosage: START DATE: {2024
     Route: 048
  8. LEXAPRO [Concomitant]
     Active Substance: ESCITALOPRAM OXALATE
     Indication: Major depression
     Route: 048
     Dates: start: 2023
  9. LEXAPRO [Concomitant]
     Active Substance: ESCITALOPRAM OXALATE
     Indication: Depression
  10. LEXAPRO [Concomitant]
     Active Substance: ESCITALOPRAM OXALATE
     Indication: Post-traumatic stress disorder
  11. LEXAPRO [Concomitant]
     Active Substance: ESCITALOPRAM OXALATE
     Indication: Anxiety
  12. ATIVAN [Concomitant]
     Active Substance: LORAZEPAM
     Indication: Major depression
     Dosage: START DATE: {2024
     Route: 048
  13. ATIVAN [Concomitant]
     Active Substance: LORAZEPAM
     Indication: Generalised anxiety disorder
  14. ATIVAN [Concomitant]
     Active Substance: LORAZEPAM
     Indication: Post-traumatic stress disorder
  15. DIPHENHYDRAMINE HYDROCHLORIDE [Concomitant]
     Active Substance: DIPHENHYDRAMINE HYDROCHLORIDE
     Dosage: 50 MG/ML 1 ML , IM , PRN, PRIOR TO SPRAVATO
     Route: 030
  16. DOXEPIN [Concomitant]
     Active Substance: DOXEPIN
     Indication: Depression
     Dates: start: 20240125
  17. DOXEPIN [Concomitant]
     Active Substance: DOXEPIN
     Indication: Anxiety
  18. TRILEPTAL [Concomitant]
     Active Substance: OXCARBAZEPINE
     Indication: Major depression
     Dates: start: 20240125
  19. VISTARIL (HYDROXYZINE HYDROCHLORIDE) [Concomitant]
     Active Substance: HYDROXYZINE HYDROCHLORIDE
     Indication: Major depression
     Dates: start: 20240125
  20. VISTARIL (HYDROXYZINE HYDROCHLORIDE) [Concomitant]
     Active Substance: HYDROXYZINE HYDROCHLORIDE
     Indication: Post-traumatic stress disorder
  21. VISTARIL (HYDROXYZINE HYDROCHLORIDE) [Concomitant]
     Active Substance: HYDROXYZINE HYDROCHLORIDE
     Indication: Generalised anxiety disorder
  22. SEROQUEL [Concomitant]
     Active Substance: QUETIAPINE FUMARATE
     Indication: Major depression
     Dates: start: 20240125
  23. SEROQUEL [Concomitant]
     Active Substance: QUETIAPINE FUMARATE
     Indication: Depression

REACTIONS (2)
  - Psychogenic seizure [Recovered/Resolved]
  - Dissociation [Recovering/Resolving]

NARRATIVE: CASE EVENT DATE: 20240111
